FAERS Safety Report 20622976 (Version 3)
Quarter: 2022Q2

REPORT INFORMATION
  Report Type: Spontaneous
  Country: US (occurrence: None)
  Receive Date: 20220322
  Receipt Date: 20220516
  Transmission Date: 20220721
  Serious: No
  Sender: FDA-Public Use
  Company Number: 2022A106935

PATIENT
  Age: 64 Year
  Sex: Female
  Weight: 99.8 kg

DRUGS (1)
  1. BUDESONIDE\FORMOTEROL\GLYCOPYRRONIUM [Suspect]
     Active Substance: BUDESONIDE\FORMOTEROL\GLYCOPYRRONIUM
     Indication: Chronic obstructive pulmonary disease
     Dosage: 160/9/4.8MCG
     Route: 055
     Dates: start: 2021

REACTIONS (10)
  - Dyspnoea [Unknown]
  - Bronchiectasis [Not Recovered/Not Resolved]
  - Sputum retention [Unknown]
  - Heart rate increased [Unknown]
  - Device use issue [Recovered/Resolved]
  - Product dose omission issue [Recovered/Resolved]
  - Expired device used [Recovered/Resolved]
  - Drug ineffective [Recovered/Resolved]
  - Wrong technique in product usage process [Unknown]
  - Device delivery system issue [Unknown]

NARRATIVE: CASE EVENT DATE: 20210101
